FAERS Safety Report 10842575 (Version 1)
Quarter: 2015Q1

REPORT INFORMATION
  Report Type: Spontaneous
  Country: US (occurrence: US)
  Receive Date: 20150220
  Receipt Date: 20150220
  Transmission Date: 20150721
  Serious: No
  Sender: FDA-Public Use
  Company Number: US-ABBVIE-14P-163-1276428-00

PATIENT
  Age: 35 Year
  Sex: Female
  Weight: 113.5 kg

DRUGS (5)
  1. PRENATAL [Concomitant]
     Active Substance: VITAMINS
     Indication: PRODUCT USED FOR UNKNOWN INDICATION
  2. VITAMIN D [Concomitant]
     Active Substance: CHOLECALCIFEROL
     Indication: PRODUCT USED FOR UNKNOWN INDICATION
  3. HUMIRA [Suspect]
     Active Substance: ADALIMUMAB
     Indication: BEHCET^S SYNDROME
     Dates: start: 2011, end: 2013
  4. PREDNISONE. [Concomitant]
     Active Substance: PREDNISONE
     Indication: PRODUCT USED FOR UNKNOWN INDICATION
     Dates: start: 201407
  5. HUMIRA [Suspect]
     Active Substance: ADALIMUMAB
     Dates: start: 20140822

REACTIONS (1)
  - Incorrect product storage [Recovered/Resolved]

NARRATIVE: CASE EVENT DATE: 20140822
